FAERS Safety Report 8841933 (Version 1)
Quarter: 2012Q4

REPORT INFORMATION
  Report Type: Spontaneous
  Country: US (occurrence: None)
  Receive Date: 20121015
  Receipt Date: 20121015
  Transmission Date: 20130627
  Serious: Yes (Hospitalization, Other)
  Sender: FDA-Public Use
  Company Number: None

PATIENT
  Age: 34 Year
  Sex: Female
  Weight: 141.8 kg

DRUGS (1)
  1. KEPPRA [Suspect]
     Indication: SEIZURE
     Route: 048
     Dates: start: 201208, end: 201209

REACTIONS (1)
  - Stevens-Johnson syndrome [None]
